FAERS Safety Report 24594521 (Version 1)
Quarter: 2024Q4

REPORT INFORMATION
  Report Type: Spontaneous
  Country: CA (occurrence: CA)
  Receive Date: 20241108
  Receipt Date: 20241108
  Transmission Date: 20250114
  Serious: Yes (Other)
  Sender: BAYER HEALTHCARE PHARMACEUTICALS INC.
  Company Number: CA-BAYER-2024A158609

PATIENT
  Age: 55 Year
  Sex: Male

DRUGS (8)
  1. CIPROFLOXACIN [Suspect]
     Active Substance: CIPROFLOXACIN
  2. AMOXICILLIN [Suspect]
     Active Substance: AMOXICILLIN
  3. FLUCONAZOLE [Suspect]
     Active Substance: FLUCONAZOLE
  4. ACETAMINOPHEN [Suspect]
     Active Substance: ACETAMINOPHEN
  5. ONDANSETRON [Suspect]
     Active Substance: ONDANSETRON
  6. PANTOPRAZOLE [Suspect]
     Active Substance: PANTOPRAZOLE
  7. PROCHLORPERAZINE [Suspect]
     Active Substance: PROCHLORPERAZINE
  8. FILGRASTIM [Suspect]
     Active Substance: FILGRASTIM

REACTIONS (1)
  - Febrile neutropenia [Unknown]
